FAERS Safety Report 24906411 (Version 2)
Quarter: 2025Q1

REPORT INFORMATION
  Report Type: Spontaneous
  Country: CO (occurrence: CO)
  Receive Date: 20250130
  Receipt Date: 20250210
  Transmission Date: 20250409
  Serious: Yes (Other)
  Sender: TAKEDA
  Company Number: CO-TAKEDA-2025TUS007636

PATIENT
  Age: 53 Year
  Sex: Male

DRUGS (3)
  1. LANADELUMAB [Suspect]
     Active Substance: LANADELUMAB
     Indication: Prophylaxis
  2. ICATIBANT [Concomitant]
     Active Substance: ICATIBANT ACETATE
  3. DANAZOL [Concomitant]
     Active Substance: DANAZOL
     Indication: Prophylaxis
     Dosage: 100 MILLIGRAM, Q3WEEKS

REACTIONS (3)
  - Erythema [Unknown]
  - Application site induration [Unknown]
  - Pruritus [Unknown]
